FAERS Safety Report 15065553 (Version 1)
Quarter: 2018Q2

REPORT INFORMATION
  Report Type: Spontaneous
  Country: US (occurrence: US)
  Receive Date: 20180605
  Receipt Date: 20180605
  Transmission Date: 20180711
  Serious: Yes (Disabling)
  Sender: FDA-Public Use
  Company Number: None

PATIENT
  Age: 38 Year
  Sex: Female
  Weight: 58.5 kg

DRUGS (10)
  1. ADVIL [Concomitant]
     Active Substance: IBUPROFEN
  2. OCELLA [Concomitant]
     Active Substance: DROSPIRENONE\ETHINYL ESTRADIOL
  3. CITRUCEL [Concomitant]
     Active Substance: METHYLCELLULOSE (4000 MPA.S)
  4. TRIFLUOPERAZINE [Concomitant]
     Active Substance: TRIFLUOPERAZINE\TRIFLUOPERAZINE HYDROCHLORIDE
  5. CLONAZEPAM. [Concomitant]
     Active Substance: CLONAZEPAM
  6. SPIRONOLACTONE. [Concomitant]
     Active Substance: SPIRONOLACTONE
  7. CLOMIPRAMINE [Concomitant]
     Active Substance: CLOMIPRAMINE
  8. CLONAZEPAM: GENERIC FOR KLONOPIN BLUE ROUND TABLET/ IMPRINT: C 1 [Suspect]
     Active Substance: CLONAZEPAM
     Indication: ANXIETY
     Dosage: ?          QUANTITY:1 TABLET(S);?
     Route: 048
  9. TERAZOSIN [Concomitant]
     Active Substance: TERAZOSIN\TERAZOSIN HYDROCHLORIDE
  10. GABAPENTIN. [Concomitant]
     Active Substance: GABAPENTIN

REACTIONS (18)
  - Abdominal pain [None]
  - Hormone level abnormal [None]
  - Impaired driving ability [None]
  - Product substitution issue [None]
  - Headache [None]
  - Dizziness [None]
  - Malaise [None]
  - Gingival swelling [None]
  - Memory impairment [None]
  - Feeling abnormal [None]
  - Nausea [None]
  - Hypertonic bladder [None]
  - Constipation [None]
  - Temperature intolerance [None]
  - Fatigue [None]
  - Musculoskeletal stiffness [None]
  - Disturbance in attention [None]
  - Blunted affect [None]

NARRATIVE: CASE EVENT DATE: 20180527
